FAERS Safety Report 25985155 (Version 1)
Quarter: 2025Q4

REPORT INFORMATION
  Report Type: Other
  Country: US (occurrence: CN)
  Receive Date: 20251031
  Receipt Date: 20251031
  Transmission Date: 20260117
  Serious: Yes (Hospitalization)
  Sender: SAPTALIS PHARMACEUTICALS
  Company Number: CN-Saptalis Pharmaceuticals LLC-2187661

PATIENT
  Age: 13 Year
  Sex: Female

DRUGS (1)
  1. LIKMEZ [Suspect]
     Active Substance: METRONIDAZOLE
     Indication: Clostridium difficile colitis

REACTIONS (1)
  - Encephalopathy [Recovered/Resolved]
